FAERS Safety Report 5288239-7 (Version None)
Quarter: 2007Q2

REPORT INFORMATION
  Report Type: 
  Country: None (occurrence: None)
  Receive Date: 20070403
  Receipt Date: 20070403
  Transmission Date: 20071010
  Serious: No
  Sender: FDA-Public Use
  Company Number: None

PATIENT
  Age: 28 Year
  Sex: Female
  Weight: 65.7716 kg

DRUGS (2)
  1. BUPROPION HCL [Suspect]
     Indication: ANXIETY
     Dosage: 150MG  1  PO
     Route: 048
     Dates: start: 20070204, end: 20070331
  2. BUPROPION HCL [Suspect]
     Indication: SOMNOLENCE
     Dosage: 150MG  1  PO
     Route: 048
     Dates: start: 20070204, end: 20070331

REACTIONS (7)
  - DIZZINESS [None]
  - FEELING ABNORMAL [None]
  - HEADACHE [None]
  - HYPERACUSIS [None]
  - IRRITABILITY [None]
  - MEMORY IMPAIRMENT [None]
  - VISION BLURRED [None]
